FAERS Safety Report 24205732 (Version 2)
Quarter: 2024Q3

REPORT INFORMATION
  Report Type: Spontaneous
  Country: JP (occurrence: JP)
  Receive Date: 20240813
  Receipt Date: 20240823
  Transmission Date: 20241017
  Serious: Yes (Hospitalization, Other)
  Sender: TAKEDA
  Company Number: JP-TAKEDA-2024TUS079880

PATIENT
  Age: 7 Decade

DRUGS (2)
  1. FOSRENOL [Suspect]
     Active Substance: LANTHANUM CARBONATE
     Indication: Chronic kidney disease
     Dosage: UNK
     Route: 048
     Dates: end: 20240806
  2. FOSRENOL [Suspect]
     Active Substance: LANTHANUM CARBONATE
     Indication: Hyperphosphataemia

REACTIONS (3)
  - Depressed level of consciousness [Unknown]
  - Dysphagia [Unknown]
  - Cerebral haemorrhage [Unknown]
